FAERS Safety Report 17350092 (Version 2)
Quarter: 2020Q1

REPORT INFORMATION
  Report Type: Report from Study
  Country: IE (occurrence: IE)
  Receive Date: 20200130
  Receipt Date: 20200205
  Transmission Date: 20200409
  Serious: Yes (Hospitalization, Other)
  Sender: FDA-Public Use
  Company Number: IE-AMGEN-IRLSL2020013888

PATIENT
  Age: 73 Year
  Sex: Male

DRUGS (1)
  1. ARANESP [Suspect]
     Active Substance: DARBEPOETIN ALFA
     Indication: PRODUCT USED FOR UNKNOWN INDICATION
     Dosage: UNK, AS PER PRESCRIPTION
     Route: 058

REACTIONS (2)
  - Unevaluable event [Not Recovered/Not Resolved]
  - Haemoglobin decreased [Not Recovered/Not Resolved]

NARRATIVE: CASE EVENT DATE: 202001
